FAERS Safety Report 10592526 (Version 3)
Quarter: 2015Q3

REPORT INFORMATION
  Report Type: Spontaneous
  Country: US (occurrence: US)
  Receive Date: 20141119
  Receipt Date: 20150720
  Transmission Date: 20151125
  Serious: No
  Sender: FDA-Public Use
  Company Number: US-PFIZER INC-2014312822

PATIENT
  Age: 52 Year
  Sex: Female
  Weight: 58 kg

DRUGS (17)
  1. CARTIA XT [Concomitant]
     Active Substance: DILTIAZEM HYDROCHLORIDE
     Indication: PAIN PROPHYLAXIS
     Dosage: 240 MG, 1X/DAY
     Dates: start: 2006
  2. SKELAXIN [Suspect]
     Active Substance: METAXALONE
     Indication: SYSTEMIC LUPUS ERYTHEMATOSUS
     Dosage: 800 MG, 2X/DAY
     Route: 048
     Dates: end: 20141022
  3. METHOTREXATE [Concomitant]
     Active Substance: METHOTREXATE
     Dosage: 2.5MG TABLETS THREE TIMES A WEEK
     Dates: start: 2005
  4. METHOTREXATE [Concomitant]
     Active Substance: METHOTREXATE
     Dosage: 2.5MG TABLETS THREE TIMES A WEEK
     Dates: start: 2005
  5. LISINOPRIL. [Concomitant]
     Active Substance: LISINOPRIL
     Dosage: 10 MG, 1X/DAY
     Route: 048
     Dates: start: 2014
  6. ROBAXIN [Concomitant]
     Active Substance: METHOCARBAMOL
     Dosage: 750 MG, 1X/DAY
     Dates: start: 2014
  7. ROBAXIN [Concomitant]
     Active Substance: METHOCARBAMOL
     Dosage: 750 MG, COULD TAKE UP TO THREE TIMES DAILY
     Dates: start: 2014, end: 201410
  8. BUSPIRONE [Concomitant]
     Active Substance: BUSPIRONE HYDROCHLORIDE
     Dosage: 10MG TABLET, 3 TABLETS IN THE MORNING AND 2 IN THE EVENING
     Dates: start: 2006
  9. TIZANIDINE. [Concomitant]
     Active Substance: TIZANIDINE
     Dosage: 4 MG, 2X/DAY
     Dates: start: 2012
  10. ZOLPIDEM [Concomitant]
     Active Substance: ZOLPIDEM\ZOLPIDEM TARTRATE
     Dosage: 5 MG, 1X/DAY
     Dates: start: 2006
  11. SKELAXIN [Suspect]
     Active Substance: METAXALONE
     Indication: FIBROMYALGIA
  12. BUPROPION. [Concomitant]
     Active Substance: BUPROPION
     Dosage: 150 MG, 2X/DAY
     Dates: start: 2006
  13. FLONASE [Concomitant]
     Active Substance: FLUTICASONE PROPIONATE
     Dosage: 2 SPRAYS IN BOTH NOSTRILS, DAILY
     Route: 045
     Dates: start: 2014
  14. PROLIA [Concomitant]
     Active Substance: DENOSUMAB
     Dosage: EVERY 6 MONTHS
     Route: 058
     Dates: start: 2013
  15. LIDODERM 5 % PATCH [Concomitant]
     Dosage: 2 PATCHES WITHIN 24HOURS
     Dates: start: 2012
  16. SKELAXIN [Suspect]
     Active Substance: METAXALONE
     Indication: MUSCLE SPASTICITY
  17. PLAQUENIL [Concomitant]
     Active Substance: HYDROXYCHLOROQUINE SULFATE
     Dosage: 200 MG, 2X/DAY
     Route: 048
     Dates: start: 2005

REACTIONS (2)
  - Pain [Recovered/Resolved]
  - Headache [Unknown]

NARRATIVE: CASE EVENT DATE: 201410
